FAERS Safety Report 10460213 (Version 1)
Quarter: 2014Q3

REPORT INFORMATION
  Report Type: Spontaneous
  Country: US (occurrence: US)
  Receive Date: 20140917
  Receipt Date: 20140917
  Transmission Date: 20150326
  Serious: Yes (Hospitalization)
  Sender: FDA-Public Use
  Company Number: PHHY2014US118281

PATIENT
  Age: 14 Year
  Sex: Female

DRUGS (2)
  1. AMOXICILLIN. [Suspect]
     Active Substance: AMOXICILLIN
  2. DORNASE ALFA [Concomitant]
     Active Substance: DORNASE ALFA

REACTIONS (7)
  - Diarrhoea haemorrhagic [Recovered/Resolved]
  - Abdominal distension [Recovered/Resolved]
  - Ascites [Unknown]
  - Haemodynamic instability [Unknown]
  - Clostridium difficile colitis [Recovered/Resolved]
  - Pyrexia [Recovered/Resolved]
  - Abdominal pain [Recovered/Resolved]
